FAERS Safety Report 14695813 (Version 1)
Quarter: 2018Q1

REPORT INFORMATION
  Report Type: Spontaneous
  Country: US (occurrence: US)
  Receive Date: 20180328
  Receipt Date: 20180328
  Transmission Date: 20180509
  Serious: Yes (Disabling)
  Sender: FDA-Public Use
  Company Number: None

PATIENT
  Age: 62 Year
  Sex: Male
  Weight: 81 kg

DRUGS (1)
  1. CIPRO [Suspect]
     Active Substance: CIPROFLOXACIN HYDROCHLORIDE
     Indication: GASTROENTERITIS VIRAL
     Dates: start: 20170202, end: 20170211

REACTIONS (2)
  - Photosensitivity reaction [None]
  - Tendon rupture [None]

NARRATIVE: CASE EVENT DATE: 20170505
